FAERS Safety Report 18603766 (Version 1)
Quarter: 2020Q4

REPORT INFORMATION
  Report Type: Spontaneous
  Country: US (occurrence: US)
  Receive Date: 20201211
  Receipt Date: 20201211
  Transmission Date: 20210114
  Serious: No
  Sender: FDA-Public Use
  Company Number: US-BIOGEN-2020BI00954477

PATIENT
  Sex: Male

DRUGS (1)
  1. PLEGRIDY [Suspect]
     Active Substance: PEGINTERFERON BETA-1A
     Indication: MULTIPLE SCLEROSIS
     Dosage: INJECT 63 MCG SUBCUTANEOUSLY ON DAY 1, AND INJECT 94 MCG ON DAY 15
     Route: 058
     Dates: start: 202011

REACTIONS (4)
  - Musculoskeletal stiffness [Recovered/Resolved]
  - Influenza like illness [Unknown]
  - Drug ineffective [Unknown]
  - Motor dysfunction [Unknown]
